FAERS Safety Report 12972356 (Version 1)
Quarter: 2016Q4

REPORT INFORMATION
  Report Type: Spontaneous
  Country: US (occurrence: US)
  Receive Date: 20161124
  Receipt Date: 20161124
  Transmission Date: 20170207
  Serious: No
  Sender: FDA-Public Use
  Company Number: US-PROSTRAKAN-2016-US-0158

PATIENT

DRUGS (1)
  1. SANCUSO [Suspect]
     Active Substance: GRANISETRON
     Indication: PROPHYLAXIS OF NAUSEA AND VOMITING
     Route: 062
     Dates: start: 201503, end: 201509

REACTIONS (12)
  - Skin burning sensation [Recovered/Resolved]
  - Application site discolouration [None]
  - Skin irritation [Recovered/Resolved]
  - Skin warm [Recovered/Resolved]
  - Skin discolouration [Not Recovered/Not Resolved]
  - Application site warmth [None]
  - Erythema [Recovered/Resolved]
  - Application site irritation [None]
  - Application site burn [None]
  - Product quality issue [Unknown]
  - Product use issue [Unknown]
  - Application site erythema [None]

NARRATIVE: CASE EVENT DATE: 201503
